FAERS Safety Report 7641771-0 (Version None)
Quarter: 2011Q3

REPORT INFORMATION
  Report Type: 
  Country: None (occurrence: None)
  Receive Date: 20110722
  Receipt Date: 20110715
  Transmission Date: 20111222
  Serious: Yes (Hospitalization)
  Sender: FDA-Public Use
  Company Number: 2011SP022771

PATIENT
  Age: 67 Year
  Sex: Female

DRUGS (2)
  1. PEG-INTRON [Suspect]
     Indication: HEPATITIS C
     Dosage: 17 MG; QD; SC
     Route: 058
     Dates: start: 20090921, end: 20100614
  2. REBETOL [Suspect]
     Indication: HEPATITIS C

REACTIONS (2)
  - CENTRAL NERVOUS SYSTEM LESION [None]
  - HAEMORRHAGIC TRANSFORMATION STROKE [None]
